FAERS Safety Report 24659489 (Version 1)
Quarter: 2024Q4

REPORT INFORMATION
  Report Type: Spontaneous
  Country: ZA (occurrence: ZA)
  Receive Date: 20241125
  Receipt Date: 20241125
  Transmission Date: 20250115
  Serious: Yes (Hospitalization)
  Sender: BAYER HEALTHCARE PHARMACEUTICALS INC.
  Company Number: ZA-BAYER-2024A166347

PATIENT
  Age: 57 Year
  Sex: Female

DRUGS (12)
  1. YASMIN [Suspect]
     Active Substance: DROSPIRENONE\ETHINYL ESTRADIOL
     Indication: Contraception
     Dosage: 1 DF, QD
     Route: 048
  2. ADCO DOL [Concomitant]
     Dosage: 2 DF, TID
     Route: 048
  3. Adco mayogel [Concomitant]
     Dosage: 10 ML, TID
     Route: 048
  4. Mist pot cit [Concomitant]
     Dosage: 10 ML, TID
     Route: 048
  5. Canex [Concomitant]
     Dosage: 1 %
     Route: 061
  6. ASPEN MOMETASONE [Concomitant]
     Indication: Dermatitis allergic
     Dosage: 1 %, QS
     Route: 061
  7. Spiractin [Concomitant]
     Indication: Hypertension
     Dosage: 25 MG, BID
     Route: 048
  8. LEVOTHYROXINE [Concomitant]
     Active Substance: LEVOTHYROXINE
     Indication: Hypothyroidism
     Dosage: 100 ?G, QD
     Route: 048
  9. LEVOTHYROXINE [Concomitant]
     Active Substance: LEVOTHYROXINE
     Indication: Hypothyroidism
     Dosage: 50 ?G, QD
     Route: 048
  10. NIFEDIPINE [Concomitant]
     Active Substance: NIFEDIPINE
     Indication: Hypertension
     Dosage: 1 DF, QD
     Route: 048
  11. OMEPRAZOLE [Concomitant]
     Active Substance: OMEPRAZOLE
     Indication: Gastrooesophageal reflux disease
     Dosage: 20 MG, QD
     Route: 048
  12. HYDROCHLOROTHIAZIDE\LOSARTAN POTASSIUM [Concomitant]
     Active Substance: HYDROCHLOROTHIAZIDE\LOSARTAN POTASSIUM
     Indication: Hypertension
     Dosage: 25 MG, QD
     Route: 048

REACTIONS (2)
  - Gastrointestinal disorder [None]
  - Diabetes mellitus [None]
